FAERS Safety Report 7769170-1 (Version None)
Quarter: 2011Q3

REPORT INFORMATION
  Report Type: 
  Country: None (occurrence: None)
  Receive Date: 20110922
  Receipt Date: 20110913
  Transmission Date: 20111222
  Serious: Yes (Hospitalization, Other)
  Sender: FDA-Public Use
  Company Number: US-SHIONOGI, INC-2011000155

PATIENT

DRUGS (14)
  1. KEPPRA [Suspect]
     Indication: CONVULSION
  2. CLONIDINE HYDROCHLORIDE [Concomitant]
     Dosage: ONE TAB IN AM AND 1PM AND TWO AT BEDTIME
  3. KAPVAY [Suspect]
     Dosage: 0.1 MG, BID
     Dates: start: 20110606, end: 20110101
  4. CONCERTA [Concomitant]
     Dosage: 54 MG, QD
     Route: 048
  5. PROZAC [Concomitant]
     Dosage: 10 MG, QD
     Route: 048
  6. ALBUTEROL [Concomitant]
     Dosage: UNK
  7. ADVAIR DISKUS 100/50 [Concomitant]
     Dosage: UNK
  8. KAPVAY [Suspect]
     Dosage: 0.3 MG, QD (0.1 MG QAM; 0.2 MG QHS)
     Dates: start: 20110101, end: 20110830
  9. MELATONIN [Concomitant]
     Dosage: 6 MG, AT BEDTIME
  10. TRAZODONE HYDROCHLORIDE [Concomitant]
     Dosage: 50 MG, QD AT BEDTIME
     Route: 048
  11. PREVACID [Concomitant]
     Dosage: 30 MG, BID
     Route: 048
  12. SINGULAIR [Concomitant]
     Dosage: UNK
  13. ZYRTEC [Concomitant]
     Dosage: UNK
  14. KEPPRA [Suspect]
     Indication: MOOD SWINGS
     Dosage: 750 MG, BID
     Route: 048

REACTIONS (5)
  - PSYCHOMOTOR HYPERACTIVITY [None]
  - MOOD ALTERED [None]
  - SEDATION [None]
  - SLEEP DISORDER [None]
  - HALLUCINATION, VISUAL [None]
